FAERS Safety Report 9351236 (Version 1)
Quarter: 2013Q2

REPORT INFORMATION
  Report Type: Spontaneous
  Country: US (occurrence: US)
  Receive Date: 20130617
  Receipt Date: 20130617
  Transmission Date: 20140414
  Serious: Yes (Other)
  Sender: FDA-Public Use
  Company Number: US-SANOFI-AVENTIS-2013SA060271

PATIENT
  Age: 54 Year
  Sex: Male

DRUGS (19)
  1. AUBAGIO [Suspect]
     Route: 048
  2. ACTHAR GEL [Concomitant]
     Dosage: DOSE:80 UNIT(S)
  3. CHOLEST-OFF [Concomitant]
  4. OMEGA 3 [Concomitant]
  5. ZINC [Concomitant]
  6. ALL OTHER THERAPEUTIC PRODUCTS [Concomitant]
  7. CAL MAG ZINC II [Concomitant]
  8. GLUCOSAMINE [Concomitant]
  9. CHONDROITIN SULFATE [Concomitant]
  10. MELOXICAM [Concomitant]
  11. FESOTERODINE [Concomitant]
  12. VOLTAREN [Concomitant]
  13. FLONASE [Concomitant]
  14. VITAMIN D3 [Concomitant]
  15. PROVIGIL [Concomitant]
  16. NEXIUM [Concomitant]
  17. CARBAMAZEPINE [Concomitant]
  18. BACLOFEN [Concomitant]
  19. ROBAXIN [Concomitant]

REACTIONS (2)
  - Mobility decreased [Unknown]
  - Drug ineffective [Unknown]
